FAERS Safety Report 4882685-9 (Version None)
Quarter: 2006Q1

REPORT INFORMATION
  Report Type: 
  Country: None (occurrence: None)
  Receive Date: 20060113
  Receipt Date: 20060103
  Transmission Date: 20060701
  Serious: Yes (Death, Other)
  Sender: FDA-Public Use
  Company Number: USA-2006-0022074

PATIENT
  Age: 83 Year
  Sex: Female
  Weight: 57.1 kg

DRUGS (9)
  1. OXYCONTIN [Suspect]
  2. ACETAMINOPHEN [Suspect]
  3. ATROPINE [Suspect]
  4. DIPHENHYDRAMINE HCL [Suspect]
  5. CYCLOBENZAPRINE HCL [Suspect]
  6. PAROXETINE (PAROXETINE) [Suspect]
  7. TEMAZEPAM [Suspect]
  8. BUTALBITAL [Suspect]
  9. DIAZEPAM [Suspect]

REACTIONS (10)
  - AORTIC ARTERIOSCLEROSIS [None]
  - COMPLETED SUICIDE [None]
  - CONDITION AGGRAVATED [None]
  - DEPRESSION [None]
  - DRUG TOXICITY [None]
  - HYPERTENSION [None]
  - INTENTIONAL DRUG MISUSE [None]
  - RENAL DISORDER [None]
  - SUICIDAL IDEATION [None]
  - THYROIDITIS [None]
